FAERS Safety Report 21702010 (Version 1)
Quarter: 2022Q4

REPORT INFORMATION
  Report Type: Spontaneous
  Country: AU (occurrence: AU)
  Receive Date: 20221208
  Receipt Date: 20221208
  Transmission Date: 20230112
  Serious: Yes (Disabling)
  Sender: FDA-Public Use
  Company Number: AU-ORGANON-O2212AUS000164

PATIENT
  Sex: Female

DRUGS (1)
  1. ETONOGESTREL [Suspect]
     Active Substance: ETONOGESTREL
     Indication: Menstrual cycle management
     Dosage: 1 IMPLANT

REACTIONS (5)
  - Ulnar nerve injury [Unknown]
  - Muscle strain [Unknown]
  - Device placement issue [Unknown]
  - Complication of device removal [Unknown]
  - Product use in unapproved indication [Unknown]

NARRATIVE: CASE EVENT DATE: 20180101
